FAERS Safety Report 18549417 (Version 3)
Quarter: 2021Q1

REPORT INFORMATION
  Report Type: Spontaneous
  Country: JP (occurrence: JP)
  Receive Date: 20201126
  Receipt Date: 20210108
  Transmission Date: 20210419
  Serious: Yes (Other)
  Sender: FDA-Public Use
  Company Number: JP-GLAXOSMITHKLINE-JP2020229995

PATIENT
  Age: 20 Year
  Sex: Female

DRUGS (5)
  1. LAMICTAL [Suspect]
     Active Substance: LAMOTRIGINE
     Indication: BIPOLAR DISORDER RELAPSE PROPHYLAXIS
     Dosage: 100 MG, 1D
     Route: 048
     Dates: end: 20201119
  2. MARVELON [Concomitant]
     Active Substance: DESOGESTREL\ETHINYL ESTRADIOL
     Indication: ACNE
     Dosage: UNK
     Route: 048
     Dates: start: 20201113, end: 20201120
  3. LAMICTAL [Suspect]
     Active Substance: LAMOTRIGINE
     Dosage: 125 MG, QD
     Route: 048
     Dates: start: 20201211
  4. LAMICTAL [Suspect]
     Active Substance: LAMOTRIGINE
     Indication: BIPOLAR II DISORDER
     Dosage: 75 MG, QD
     Route: 048
     Dates: start: 20201120, end: 20201203
  5. LAMICTAL [Suspect]
     Active Substance: LAMOTRIGINE
     Dosage: 100 MG, QD
     Route: 048
     Dates: start: 20201204, end: 20201210

REACTIONS (4)
  - Bipolar II disorder [Recovering/Resolving]
  - Depressed mood [Recovering/Resolving]
  - Condition aggravated [Recovering/Resolving]
  - Acne [Unknown]

NARRATIVE: CASE EVENT DATE: 202011
